FAERS Safety Report 4264022-6 (Version None)
Quarter: 2004Q1

REPORT INFORMATION
  Report Type: 
  Country: None (occurrence: None)
  Receive Date: 20040102
  Receipt Date: 20031222
  Transmission Date: 20041129
  Serious: Yes (Hospitalization, Other)
  Sender: FDA-Public Use
  Company Number: DE_031212639

PATIENT
  Age: 68 Year
  Sex: Female

DRUGS (6)
  1. GEMZAR [Suspect]
     Indication: SARCOMA UTERUS
     Dosage: 450 MG/M2/PER INFUSION
  2. TAXOTERE [Concomitant]
  3. DEXAMETHASONE [Concomitant]
  4. ZOFRAN [Concomitant]
  5. TAVEGIL (CLEMASTINE) [Concomitant]
  6. SOSTRIL (RANITIDINE HYDROCHLORIDE) [Concomitant]

REACTIONS (5)
  - C-REACTIVE PROTEIN INCREASED [None]
  - ERYTHEMA [None]
  - HAEMOGLOBIN DECREASED [None]
  - PYREXIA [None]
  - SKIN DESQUAMATION [None]
